FAERS Safety Report 14923250 (Version 1)
Quarter: 2018Q2

REPORT INFORMATION
  Report Type: Report from Study
  Country: IT (occurrence: IT)
  Receive Date: 20180522
  Receipt Date: 20180522
  Transmission Date: 20180711
  Serious: Yes (Other)
  Sender: FDA-Public Use
  Company Number: IT-MYLANLABS-2018M1032907

PATIENT

DRUGS (3)
  1. OXALIPLATIN. [Suspect]
     Active Substance: OXALIPLATIN
     Indication: METASTATIC GASTRIC CANCER
     Dosage: ON DAY 8 AND 22, EVERY 4 WEEK WITH DOSE ESCALATION (FD/FOX REGIMEN)
     Route: 065
  2. FLUOROURACIL. [Suspect]
     Active Substance: FLUOROURACIL
     Indication: METASTATIC GASTRIC CANCER
     Dosage: 12H-TIMED-FLAT-INFUSION FLUOROURACIL ON DAYS 1-2, 8-9, 15-16, 22-23, WITH DOSE ESCALATION (FD/FOX...
     Route: 050
  3. DOCETAXEL. [Suspect]
     Active Substance: DOCETAXEL
     Indication: METASTATIC GASTRIC CANCER
     Dosage: ON DAY 1 AND DAY 15, FIXED DOSE (FD/FOX REGIMEN)
     Route: 065

REACTIONS (6)
  - Mucosal inflammation [Unknown]
  - Neutropenia [Unknown]
  - Neurotoxicity [Unknown]
  - Asthenia [Unknown]
  - Diarrhoea [Unknown]
  - Constipation [Unknown]
